FAERS Safety Report 5515674-1 (Version None)
Quarter: 2007Q4

REPORT INFORMATION
  Report Type: 
  Country: None (occurrence: None)
  Receive Date: 20071113
  Receipt Date: 20070813
  Transmission Date: 20080405
  Serious: No
  Sender: FDA-Public Use
  Company Number: A0669814A

PATIENT
  Sex: Female

DRUGS (7)
  1. COREG [Suspect]
     Dosage: 12.5MG TWICE PER DAY
     Route: 048
  2. COREG CR [Suspect]
     Dosage: 40MG PER DAY
     Route: 048
  3. LOTREL [Concomitant]
  4. POTASSIUM CHLORIDE [Concomitant]
  5. ASPIRIN [Concomitant]
  6. DIGOXIN [Concomitant]
  7. FUROSEMIDE [Concomitant]

REACTIONS (3)
  - ASTHENIA [None]
  - DRY EYE [None]
  - WEIGHT DECREASED [None]
